FAERS Safety Report 14323856 (Version 2)
Quarter: 2018Q2

REPORT INFORMATION
  Report Type: Spontaneous
  Country: DE (occurrence: DE)
  Receive Date: 20171226
  Receipt Date: 20180413
  Transmission Date: 20180711
  Serious: Yes (Other)
  Sender: FDA-Public Use
  Company Number: DE-AUROBINDO-AUR-APL-2017-46835

PATIENT
  Age: 80 Year
  Sex: Female

DRUGS (17)
  1. JANUVIA [Concomitant]
     Active Substance: SITAGLIPTIN PHOSPHATE
     Indication: PRODUCT USED FOR UNKNOWN INDICATION
     Dosage: UNK
  2. JANUVIA [Concomitant]
     Active Substance: SITAGLIPTIN PHOSPHATE
     Dosage: ()
  3. LARIAM [Concomitant]
     Active Substance: MEFLOQUINE HYDROCHLORIDE
     Indication: PRODUCT USED FOR UNKNOWN INDICATION
     Dosage: UNK
  4. ENAHEXAL                           /00574902/ [Concomitant]
     Active Substance: ENALAPRIL MALEATE
     Dosage: ()
  5. DIAMOX                             /00016901/ [Concomitant]
     Active Substance: ACETAZOLAMIDE
     Indication: PRODUCT USED FOR UNKNOWN INDICATION
     Dosage: UNK
  6. DIGIMERCK [Suspect]
     Active Substance: DIGITOXIN
     Dosage: 0.07 MILLIGRAM
  7. FUROSEMIDE. [Concomitant]
     Active Substance: FUROSEMIDE
     Indication: PRODUCT USED FOR UNKNOWN INDICATION
     Dosage: UNK
  8. SIMVASTATIN. [Suspect]
     Active Substance: SIMVASTATIN
     Indication: PRODUCT USED FOR UNKNOWN INDICATION
     Dosage: ()
  9. DIGIMERCK [Suspect]
     Active Substance: DIGITOXIN
     Indication: PRODUCT USED FOR UNKNOWN INDICATION
     Dosage: 0.1 MG, UNK
  10. DIGIMERCK [Suspect]
     Active Substance: DIGITOXIN
     Dosage: 0.07 MG, UNK
  11. DIGIMERCK [Suspect]
     Active Substance: DIGITOXIN
     Dosage: DOSE REINTRODUCED IN 2017 ()
  12. ENAHEXAL                           /00574902/ [Concomitant]
     Active Substance: ENALAPRIL MALEATE
     Indication: PRODUCT USED FOR UNKNOWN INDICATION
     Dosage: UNK
  13. INSULIN [Concomitant]
     Active Substance: INSULIN NOS
     Indication: PRODUCT USED FOR UNKNOWN INDICATION
     Dosage: UNK
  14. LARIAM [Concomitant]
     Active Substance: MEFLOQUINE HYDROCHLORIDE
     Dosage: ()
  15. DIAMOX                             /00016901/ [Concomitant]
     Active Substance: ACETAZOLAMIDE
     Dosage: ()
  16. INSULIN [Concomitant]
     Active Substance: INSULIN NOS
     Dosage: ()
  17. FUROSEMIDE. [Concomitant]
     Active Substance: FUROSEMIDE
     Dosage: ()

REACTIONS (11)
  - Sleep disorder [Unknown]
  - Muscular weakness [Recovering/Resolving]
  - Decreased appetite [Recovering/Resolving]
  - Drug dose omission [Unknown]
  - Procedural haemorrhage [Unknown]
  - Muscle injury [Unknown]
  - Oedema peripheral [Unknown]
  - Retinal detachment [Unknown]
  - Pain in extremity [Recovering/Resolving]
  - Depression [Unknown]
  - Malaise [Unknown]

NARRATIVE: CASE EVENT DATE: 2015
